FAERS Safety Report 18052904 (Version 2)
Quarter: 2021Q4

REPORT INFORMATION
  Report Type: Spontaneous
  Country: US (occurrence: US)
  Receive Date: 20200721
  Receipt Date: 20211022
  Transmission Date: 20220303
  Serious: Yes (Disabling, Other)
  Sender: FDA-Public Use
  Company Number: US-PURDUE-USA-2020-0158105

PATIENT
  Sex: Male

DRUGS (8)
  1. OXYCONTIN [Suspect]
     Active Substance: OXYCODONE HYDROCHLORIDE
     Indication: Product used for unknown indication
     Dosage: UNKNOWN
     Route: 048
  2. MS CONTIN [Suspect]
     Active Substance: MORPHINE SULFATE
     Indication: Pain
     Dosage: 120 UNK, MONTHLY
     Route: 048
     Dates: start: 1999
  3. MS CONTIN [Suspect]
     Active Substance: MORPHINE SULFATE
     Dosage: 120 UNK, MONTHLY
     Route: 048
  4. MORPHINE SULFATE [Suspect]
     Active Substance: MORPHINE SULFATE
     Indication: Product used for unknown indication
     Dosage: UNKNOWN
     Route: 048
  5. OXYCODONE HYDROCHLORIDE [Suspect]
     Active Substance: OXYCODONE HYDROCHLORIDE
     Indication: Pain
     Dosage: 120 UNK, MONTHLY
     Route: 048
     Dates: start: 1999
  6. HYDROCODONE BITARTRATE AND ACETAMINOPHEN [Suspect]
     Active Substance: ACETAMINOPHEN\HYDROCODONE BITARTRATE
     Indication: Product used for unknown indication
     Route: 048
  7. HYDROMORPHONE [Suspect]
     Active Substance: HYDROMORPHONE
     Indication: Product used for unknown indication
     Route: 048
  8. MORPHINE SULFATE [Suspect]
     Active Substance: MORPHINE SULFATE
     Indication: Product used for unknown indication
     Route: 048

REACTIONS (7)
  - Tooth loss [Unknown]
  - Imprisonment [Unknown]
  - Drug dependence [Unknown]
  - Renal disorder [Unknown]
  - Theft [Unknown]
  - Pain [Unknown]
  - Emotional distress [Unknown]

NARRATIVE: CASE EVENT DATE: 20100101
